FAERS Safety Report 6238908-7 (Version None)
Quarter: 2009Q2

REPORT INFORMATION
  Report Type: 
  Country: None (occurrence: None)
  Receive Date: 20090622
  Receipt Date: 20090615
  Transmission Date: 20091009
  Serious: Yes (Hospitalization)
  Sender: FDA-Public Use
  Company Number: US-JNJFOC-20081100182

PATIENT
  Sex: Female
  Weight: 108.9 kg

DRUGS (23)
  1. GOLIMUMAB [Suspect]
     Route: 058
  2. GOLIMUMAB [Suspect]
     Route: 058
  3. GOLIMUMAB [Suspect]
     Route: 058
  4. GOLIMUMAB [Suspect]
     Route: 058
  5. GOLIMUMAB [Suspect]
     Route: 058
  6. GOLIMUMAB [Suspect]
     Route: 058
  7. GOLIMUMAB [Suspect]
     Route: 058
  8. GOLIMUMAB [Suspect]
     Route: 058
  9. GOLIMUMAB [Suspect]
     Dosage: WEEK 16
     Route: 058
  10. GOLIMUMAB [Suspect]
     Route: 058
  11. GOLIMUMAB [Suspect]
     Route: 058
  12. GOLIMUMAB [Suspect]
     Route: 058
  13. GOLIMUMAB [Suspect]
     Indication: RHEUMATOID ARTHRITIS
     Route: 058
  14. XANAX [Concomitant]
     Route: 048
  15. CALCIUM [Concomitant]
     Route: 048
  16. PLAQUENIL [Concomitant]
     Route: 048
  17. AMBIEN CR [Concomitant]
     Route: 048
  18. PREDNISONE [Concomitant]
     Route: 048
  19. NORVASC [Concomitant]
     Route: 048
  20. PRILOSEC [Concomitant]
     Route: 048
  21. LEXAPRO [Concomitant]
     Route: 048
  22. LORTAB [Concomitant]
     Route: 048
  23. DOXYCYCLINE [Concomitant]
     Route: 048

REACTIONS (2)
  - DYSPNOEA [None]
  - PNEUMONIA [None]
